FAERS Safety Report 17326472 (Version 5)
Quarter: 2020Q2

REPORT INFORMATION
  Report Type: Spontaneous
  Country: CH (occurrence: CH)
  Receive Date: 20200127
  Receipt Date: 20200519
  Transmission Date: 20200713
  Serious: Yes (Other)
  Sender: FDA-Public Use
  Company Number: CH-ABBVIE-20K-151-3249434-00

PATIENT
  Age: 36 Year
  Sex: Male

DRUGS (7)
  1. HUMIRA [Suspect]
     Active Substance: ADALIMUMAB
     Indication: PSORIATIC ARTHROPATHY
     Route: 058
     Dates: start: 20170127, end: 201907
  2. METHOTREXATE. [Concomitant]
     Active Substance: METHOTREXATE
     Indication: PRODUCT USED FOR UNKNOWN INDICATION
     Dosage: LESS THAN 15MG
     Dates: end: 20161020
  3. IBUPROFEN. [Concomitant]
     Active Substance: IBUPROFEN
     Indication: PRODUCT USED FOR UNKNOWN INDICATION
  4. TILUR RETARD [Concomitant]
     Active Substance: ACEMETACIN
     Indication: PRODUCT USED FOR UNKNOWN INDICATION
     Dosage: 1, MAXIMUM 2 A DAY
  5. CORTICOSTEROIDS [Concomitant]
     Active Substance: CORTICOSTEROID NOS
     Route: 014
     Dates: start: 20200323
  6. METHOTREXATE. [Concomitant]
     Active Substance: METHOTREXATE
     Dates: start: 20161109, end: 201710
  7. CORTICOSTEROIDS [Concomitant]
     Active Substance: CORTICOSTEROID NOS
     Indication: PRODUCT USED FOR UNKNOWN INDICATION
     Route: 014
     Dates: start: 20200217, end: 2020

REACTIONS (32)
  - Glioma [Not Recovered/Not Resolved]
  - Tenosynovitis [Unknown]
  - Synovitis [Not Recovered/Not Resolved]
  - Seizure [Recovered/Resolved]
  - Melanocytic naevus [Unknown]
  - Epilepsy [Not Recovered/Not Resolved]
  - Disorientation [Recovered/Resolved]
  - Disorientation [Unknown]
  - Seizure [Recovered/Resolved]
  - Seizure [Recovered/Resolved]
  - Speech disorder [Not Recovered/Not Resolved]
  - Tinea versicolour [Recovered/Resolved]
  - Paraesthesia [Recovered/Resolved]
  - Peripheral swelling [Not Recovered/Not Resolved]
  - Muscle swelling [Unknown]
  - Disorientation [Recovered/Resolved]
  - Nodule [Unknown]
  - Paraesthesia [Recovered/Resolved]
  - Arthralgia [Unknown]
  - Psychiatric symptom [Unknown]
  - Cerebral disorder [Not Recovered/Not Resolved]
  - Psoriatic arthropathy [Recovering/Resolving]
  - Arthralgia [Recovering/Resolving]
  - Memory impairment [Recovered/Resolved]
  - Memory impairment [Recovering/Resolving]
  - Bone erosion [Unknown]
  - Hypertriglyceridaemia [Unknown]
  - Disorientation [Recovered/Resolved]
  - Arthropathy [Unknown]
  - Hyperuricaemia [Unknown]
  - Paraesthesia [Recovered/Resolved]
  - Memory impairment [Unknown]

NARRATIVE: CASE EVENT DATE: 201807
